FAERS Safety Report 16273189 (Version 1)
Quarter: 2019Q2

REPORT INFORMATION
  Report Type: Spontaneous
  Country: US (occurrence: US)
  Receive Date: 20190506
  Receipt Date: 20190506
  Transmission Date: 20190711
  Serious: Yes (Death, Hospitalization, Other)
  Sender: FDA-Public Use
  Company Number: US-ROCHE-2309366

PATIENT
  Sex: Male

DRUGS (2)
  1. OCREVUS [Suspect]
     Active Substance: OCRELIZUMAB
     Indication: MULTIPLE SCLEROSIS
     Route: 065
  2. OCREVUS [Suspect]
     Active Substance: OCRELIZUMAB
     Dosage: ONGOING:NO
     Route: 065
     Dates: start: 20181207

REACTIONS (9)
  - Urinary tract infection [Unknown]
  - Clostridium difficile colitis [Unknown]
  - Cerebrovascular accident [Unknown]
  - Sepsis [Fatal]
  - Urosepsis [Unknown]
  - Dementia [Unknown]
  - Pneumonia [Unknown]
  - Dehydration [Unknown]
  - Multiple sclerosis relapse [Unknown]
